FAERS Safety Report 6094542-3 (Version None)
Quarter: 2009Q1

REPORT INFORMATION
  Report Type: 
  Country: None (occurrence: None)
  Receive Date: 20090226
  Receipt Date: 20090219
  Transmission Date: 20090719
  Serious: Yes (Other)
  Sender: FDA-Public Use
  Company Number: US-B.I. PHARMACEUTICALS,INC./RIDGEFIELD-2009-BP-00614BP

PATIENT
  Sex: Male

DRUGS (1)
  1. FLOMAX [Suspect]
     Indication: NOCTURIA
     Dosage: .4MG
     Route: 048
     Dates: start: 20020801

REACTIONS (3)
  - NEOPLASM MALIGNANT [None]
  - NOCTURIA [None]
  - PROSTATIC SPECIFIC ANTIGEN [None]
